FAERS Safety Report 23478582 (Version 1)
Quarter: 2024Q1

REPORT INFORMATION
  Report Type: Report from Study
  Country: US (occurrence: US)
  Receive Date: 20240205
  Receipt Date: 20240205
  Transmission Date: 20240410
  Serious: No
  Sender: FDA-Public Use
  Company Number: US-EXELIXIS-CABO-23068153

PATIENT
  Sex: Male

DRUGS (5)
  1. CABOMETYX [Suspect]
     Active Substance: CABOZANTINIB S-MALATE
     Indication: Renal cell carcinoma
     Dosage: 40 MG, QD
     Dates: start: 20230728
  2. OPDIVO [Suspect]
     Active Substance: NIVOLUMAB
     Indication: Renal cell carcinoma
     Dosage: Q 28 DAYS
     Dates: start: 20230728
  3. ARMOUR THYROID [Concomitant]
     Active Substance: THYROID, PORCINE
  4. PREDNISONE [Concomitant]
     Active Substance: PREDNISONE
  5. FAMOTIDINE [Concomitant]
     Active Substance: FAMOTIDINE

REACTIONS (7)
  - Blood pressure increased [Recovering/Resolving]
  - Pain in extremity [Unknown]
  - Fatigue [Recovered/Resolved]
  - Alanine aminotransferase increased [Unknown]
  - Aspartate aminotransferase increased [Unknown]
  - Dysgeusia [Unknown]
  - Oral pain [Unknown]
